FAERS Safety Report 22341919 (Version 1)
Quarter: 2023Q2

REPORT INFORMATION
  Report Type: Report from Study
  Country: PR (occurrence: PR)
  Receive Date: 20230518
  Receipt Date: 20230518
  Transmission Date: 20230722
  Serious: Yes (Other)
  Sender: FDA-Public Use
  Company Number: PR-ABBVIE-4769305

PATIENT
  Sex: Male
  Weight: 117.93 kg

DRUGS (4)
  1. HUMIRA [Suspect]
     Active Substance: ADALIMUMAB
     Indication: Product used for unknown indication
     Dosage: 40MG/0.4ML
     Route: 058
     Dates: end: 202304
  2. HUMIRA [Suspect]
     Active Substance: ADALIMUMAB
  3. JANSSEN COVID-19 VACCINE [Concomitant]
     Active Substance: AD26.COV2.S
     Indication: COVID-19
     Dosage: 1ST DOSE
     Route: 030
  4. PFIZER-BIONTECH COVID-19 VACCINE [Concomitant]
     Active Substance: TOZINAMERAN
     Indication: COVID-19
     Dosage: 2ND DOSE
     Route: 030

REACTIONS (2)
  - Limb traumatic amputation [Recovered/Resolved]
  - Accident at work [Recovered/Resolved]

NARRATIVE: CASE EVENT DATE: 20230101
